FAERS Safety Report 9746310 (Version 2)
Quarter: 2013Q4

REPORT INFORMATION
  Report Type: Spontaneous
  Country: US (occurrence: US)
  Receive Date: 20131211
  Receipt Date: 20131211
  Transmission Date: 20140711
  Serious: No
  Sender: FDA-Public Use
  Company Number: US-B.I. PHARMACEUTICALS,INC./RIDGEFIELD-2013-BI-17121BP

PATIENT
  Sex: Female
  Weight: 62.6 kg

DRUGS (2)
  1. COMBIVENT [Suspect]
     Indication: ASTHMA
     Dosage: STRENGTH: 18 MCG / 103 MCG; DAILY DOSE:144MCG/824 MCG
     Route: 055
     Dates: start: 2007, end: 201309
  2. FLOVENT [Concomitant]
     Indication: ASTHMA
     Dosage: 88 MCG
     Route: 055

REACTIONS (3)
  - Headache [Not Recovered/Not Resolved]
  - Tremor [Not Recovered/Not Resolved]
  - Off label use [Recovered/Resolved]
